FAERS Safety Report 5375969-1 (Version None)
Quarter: 2007Q3

REPORT INFORMATION
  Report Type: 
  Country: None (occurrence: None)
  Receive Date: 20070702
  Receipt Date: 20070625
  Transmission Date: 20080115
  Serious: Yes (Hospitalization)
  Sender: FDA-Public Use
  Company Number: US-AVENTIS-200122644US

PATIENT
  Sex: Female
  Weight: 65.4 kg

DRUGS (12)
  1. TAXOTERE [Suspect]
     Indication: BREAST CANCER
     Route: 042
     Dates: start: 20010912, end: 20011029
  2. DOXORUBICIN HCL [Suspect]
     Indication: BREAST CANCER
     Route: 042
     Dates: start: 20010912, end: 20011029
  3. CYCLOPHOSPHAMIDE [Suspect]
     Indication: BREAST CANCER
     Route: 042
     Dates: start: 20010912, end: 20011029
  4. K-DUR 10 [Concomitant]
     Route: 048
  5. GLUCOTROL XL [Concomitant]
     Route: 048
     Dates: end: 20011108
  6. GLUCOPHAGE [Concomitant]
     Route: 048
  7. METOPROLOL SUCCINATE [Concomitant]
     Indication: BLOOD PRESSURE
     Route: 048
  8. TRIAMTERENE AND HYDROCHLOROTHIAZIDE [Concomitant]
     Indication: BLOOD PRESSURE
     Dosage: DOSE: 75/50
     Route: 048
  9. GEMFIBROZIL [Concomitant]
     Route: 048
  10. HUMULIN N [Concomitant]
     Route: 058
  11. HUMULIN N [Concomitant]
     Route: 058
  12. LANTUS [Concomitant]
     Route: 058
     Dates: start: 20011108

REACTIONS (4)
  - ASTHENIA [None]
  - DEHYDRATION [None]
  - DIABETES MELLITUS [None]
  - NEUTROPENIA [None]
